FAERS Safety Report 5787239-8 (Version None)
Quarter: 2008Q2

REPORT INFORMATION
  Report Type: 
  Country: None (occurrence: None)
  Receive Date: 20080625
  Receipt Date: 20070820
  Transmission Date: 20081010
  Serious: No
  Sender: FDA-Public Use
  Company Number: US-ASTRAZENECA-2007UW19980

PATIENT
  Age: 65 Year
  Sex: Female

DRUGS (4)
  1. PULMICORT-100 [Suspect]
     Indication: ASTHMA
     Dosage: 1 PUFF
     Route: 055
     Dates: start: 20070801, end: 20070801
  2. METOPROLOL [Concomitant]
  3. BONIVA [Concomitant]
  4. MULTI-VITAMIN [Concomitant]

REACTIONS (3)
  - MALAISE [None]
  - NAUSEA [None]
  - PHARMACEUTICAL PRODUCT COMPLAINT [None]
